FAERS Safety Report 9136711 (Version 1)
Quarter: 2013Q1

REPORT INFORMATION
  Report Type: Spontaneous
  Country: US (occurrence: US)
  Receive Date: 20130304
  Receipt Date: 20130304
  Transmission Date: 20140127
  Serious: No
  Sender: FDA-Public Use
  Company Number: US-ABBOTT-12P-163-1025589-00

PATIENT
  Sex: Female

DRUGS (1)
  1. ANDROGEL [Suspect]
     Indication: ACCIDENTAL EXPOSURE TO PRODUCT
     Route: 062
     Dates: start: 2011

REACTIONS (13)
  - Local swelling [Unknown]
  - Exposure via partner [Not Recovered/Not Resolved]
  - Hair growth abnormal [Unknown]
  - Arthralgia [Unknown]
  - Joint swelling [Unknown]
  - Muscle spasms [Unknown]
  - Polymenorrhoea [Not Recovered/Not Resolved]
  - Dysmenorrhoea [Not Recovered/Not Resolved]
  - Bedridden [Unknown]
  - Hormone level abnormal [Unknown]
  - Spinal cord injury [Unknown]
  - Spinal pain [Unknown]
  - Feeling abnormal [Unknown]
